FAERS Safety Report 22623973 (Version 2)
Quarter: 2023Q2

REPORT INFORMATION
  Report Type: Spontaneous
  Country: IT (occurrence: IT)
  Receive Date: 20230621
  Receipt Date: 20230627
  Transmission Date: 20230721
  Serious: Yes (Hospitalization, Other)
  Sender: FDA-Public Use
  Company Number: IT-MINISAL02-929436

PATIENT
  Age: 23 Year
  Sex: Female

DRUGS (1)
  1. ACETAMINOPHEN [Suspect]
     Active Substance: ACETAMINOPHEN
     Indication: Intentional self-injury
     Dosage: 7 GRAM (FREQUENZA SOMMINISTRAZIONE: TOTALEVIA SOMMINISTRAZIONE: ORALE)
     Route: 048
     Dates: start: 20230518, end: 20230519

REACTIONS (3)
  - Acidosis [Recovered/Resolved]
  - Drug abuse [Recovered/Resolved]
  - Mood altered [Recovered/Resolved]

NARRATIVE: CASE EVENT DATE: 20230519
